FAERS Safety Report 19769701 (Version 2)
Quarter: 2021Q3

REPORT INFORMATION
  Report Type: Report from Study
  Country: US (occurrence: US)
  Receive Date: 20210831
  Receipt Date: 20210908
  Transmission Date: 20211014
  Serious: No
  Sender: FDA-Public Use
  Company Number: NVSC2021US196339

PATIENT
  Age: 45 Year
  Sex: Male
  Weight: 90.72 kg

DRUGS (3)
  1. KESIMPTA [Suspect]
     Active Substance: OFATUMUMAB
     Dosage: 20 MG
     Route: 058
  2. KESIMPTA [Suspect]
     Active Substance: OFATUMUMAB
     Indication: MULTIPLE SCLEROSIS
     Dosage: 20 MG, QMO
     Route: 058
     Dates: start: 20210812
  3. MULTIVITAMIN [Concomitant]
     Active Substance: VITAMINS
     Indication: PRODUCT USED FOR UNKNOWN INDICATION
     Dosage: UNK
     Route: 065

REACTIONS (13)
  - Headache [Recovered/Resolved]
  - Muscular weakness [Recovered/Resolved]
  - Drug ineffective [Unknown]
  - Nausea [Unknown]
  - Vomiting [Recovered/Resolved]
  - Chills [Unknown]
  - Dizziness [Recovered/Resolved]
  - Vomiting [Unknown]
  - Dizziness [Unknown]
  - Mobility decreased [Unknown]
  - Chills [Recovered/Resolved]
  - Disorientation [Recovered/Resolved]
  - Nausea [Recovered/Resolved]

NARRATIVE: CASE EVENT DATE: 20210813
